FAERS Safety Report 18073148 (Version 1)
Quarter: 2020Q3

REPORT INFORMATION
  Report Type: Spontaneous
  Country: US (occurrence: US)
  Receive Date: 20200727
  Receipt Date: 20200727
  Transmission Date: 20201103
  Serious: Yes (Disabling)
  Sender: FDA-Public Use
  Company Number: None

PATIENT
  Age: 76 Year
  Sex: Male
  Weight: 67.5 kg

DRUGS (13)
  1. BUDESONIDE. [Concomitant]
     Active Substance: BUDESONIDE
  2. NUPLAZID [Suspect]
     Active Substance: PIMAVANSERIN TARTRATE
     Indication: PARKINSON^S DISEASE
     Dosage: ?          QUANTITY:1 CAPSULE(S);?
     Route: 048
     Dates: start: 20200717, end: 20200717
  3. VISBIOME PROBIOTIC [Concomitant]
  4. QUETIAPINE. [Concomitant]
     Active Substance: QUETIAPINE
  5. ALBUTEROL. [Concomitant]
     Active Substance: ALBUTEROL
  6. CALCIUM + D3 [Concomitant]
  7. FLUDROCORT [Concomitant]
  8. MULTIVITAMIN [Concomitant]
     Active Substance: VITAMINS
  9. OMEGA?3 ACIDS [Concomitant]
     Active Substance: OMEGA-3 FATTY ACIDS
  10. RIVASTIGMINE. [Concomitant]
     Active Substance: RIVASTIGMINE
  11. CLONAZEPAM. [Concomitant]
     Active Substance: CLONAZEPAM
  12. MELATONIN [Concomitant]
     Active Substance: MELATONIN
  13. CITICOLINE CDP CHOLINE [Concomitant]

REACTIONS (5)
  - Hallucination [None]
  - Movement disorder [None]
  - Cognitive disorder [None]
  - Speech disorder [None]
  - Delusion [None]

NARRATIVE: CASE EVENT DATE: 20200718
